FAERS Safety Report 12921375 (Version 2)
Quarter: 2016Q4

REPORT INFORMATION
  Report Type: Spontaneous
  Country: CA (occurrence: CA)
  Receive Date: 20161108
  Receipt Date: 20161111
  Transmission Date: 20170207
  Serious: Yes (Hospitalization, Other)
  Sender: FDA-Public Use
  Company Number: CA-GLAXOSMITHKLINE-CA2016GSK163264

PATIENT
  Age: 58 Year
  Sex: Male
  Weight: 92 kg

DRUGS (4)
  1. FUCIDIN [Concomitant]
     Active Substance: FUSIDIC ACID
     Indication: PRODUCT USED FOR UNKNOWN INDICATION
  2. ATARAX [Concomitant]
     Active Substance: HYDROXYZINE\HYDROXYZINE HYDROCHLORIDE
     Indication: PRODUCT USED FOR UNKNOWN INDICATION
     Dosage: 25 MG, UNK
  3. TERBINAFINE. [Suspect]
     Active Substance: TERBINAFINE
     Indication: ONYCHOMYCOSIS
     Dosage: 250 MG, QD (FROM DAY -82 TO DAY -42)
  4. TEMODAL [Concomitant]
     Active Substance: TEMOZOLOMIDE
     Indication: PRODUCT USED FOR UNKNOWN INDICATION
     Dosage: 20 MG, UNK

REACTIONS (16)
  - Rash erythematous [Unknown]
  - Erythema [Unknown]
  - Hepatitis [Unknown]
  - Weight decreased [Unknown]
  - Jaundice [Unknown]
  - Faeces pale [Unknown]
  - Eye pruritus [Unknown]
  - Oedema peripheral [Unknown]
  - Chromaturia [Unknown]
  - Eosinophilia [Unknown]
  - Dry eye [Unknown]
  - Decreased appetite [Unknown]
  - Thrombocytopenia [Unknown]
  - Hepatic enzyme abnormal [Unknown]
  - Drug reaction with eosinophilia and systemic symptoms [Unknown]
  - Pruritus [Unknown]
